FAERS Safety Report 14548373 (Version 1)
Quarter: 2018Q1

REPORT INFORMATION
  Report Type: Spontaneous
  Country: US (occurrence: US)
  Receive Date: 20180219
  Receipt Date: 20180219
  Transmission Date: 20180509
  Serious: No
  Sender: FDA-Public Use
  Company Number: US-ROCHE-1902986

PATIENT
  Age: 37 Year
  Sex: Male
  Weight: 113.6 kg

DRUGS (2)
  1. XOLAIR [Suspect]
     Active Substance: OMALIZUMAB
     Indication: ASTHMA
     Dosage: ONGOING;UNKNOWN
     Route: 058
     Dates: start: 20170210
  2. XOLAIR [Suspect]
     Active Substance: OMALIZUMAB
     Route: 058
     Dates: start: 20170224

REACTIONS (4)
  - Rash [Recovered/Resolved]
  - Lymph node pain [Not Recovered/Not Resolved]
  - Lymphadenopathy [Recovered/Resolved]
  - Lymphadenopathy [Not Recovered/Not Resolved]

NARRATIVE: CASE EVENT DATE: 20170210
